FAERS Safety Report 15956116 (Version 1)
Quarter: 2019Q1

REPORT INFORMATION
  Report Type: Report from Study
  Country: US (occurrence: US)
  Receive Date: 20190213
  Receipt Date: 20190213
  Transmission Date: 20190417
  Serious: Yes (Other)
  Sender: FDA-Public Use
  Company Number: US-EMD SERONO-9066185

PATIENT
  Sex: Male

DRUGS (1)
  1. REBIF [Suspect]
     Active Substance: INTERFERON BETA-1A
     Indication: MULTIPLE SCLEROSIS
     Route: 058
     Dates: start: 20180122

REACTIONS (7)
  - Transient aphasia [Unknown]
  - Gait inability [Recovered/Resolved]
  - Vomiting [Recovering/Resolving]
  - Malaise [Recovering/Resolving]
  - Adverse food reaction [Unknown]
  - Seizure like phenomena [Recovering/Resolving]
  - Tremor [Unknown]
